FAERS Safety Report 6047540-X (Version None)
Quarter: 2009Q1

REPORT INFORMATION
  Report Type: 
  Country: None (occurrence: None)
  Receive Date: 20090123
  Receipt Date: 20090113
  Transmission Date: 20090719
  Serious: Yes (Death, Other)
  Sender: FDA-Public Use
  Company Number: US-RANBAXY-2009US-20879

PATIENT

DRUGS (8)
  1. ISOPTIN SR [Suspect]
     Indication: SUICIDAL IDEATION
     Dosage: UNK, UNK
     Route: 048
  2. METFORMIN HYDROCHLORIDE [Suspect]
     Indication: SUICIDAL IDEATION
     Route: 048
  3. TRIAMTERENE AND HYDROCHLOROTHIAZIDE [Suspect]
     Indication: SUICIDAL IDEATION
     Route: 048
  4. GLIPIZIDE [Suspect]
     Indication: SUICIDAL IDEATION
     Route: 048
  5. LITHIUM CARBONATE [Suspect]
     Indication: SUICIDAL IDEATION
     Route: 048
  6. OLANZAPINE [Suspect]
     Indication: SUICIDAL IDEATION
  7. MEVACOR [Suspect]
     Indication: SUICIDAL IDEATION
  8. HYDROGEN PEROXIDE [Suspect]
     Indication: SUICIDAL IDEATION

REACTIONS (1)
  - COMPLETED SUICIDE [None]
